FAERS Safety Report 10200311 (Version 2)
Quarter: 2014Q2

REPORT INFORMATION
  Report Type: Report from Study
  Country: BD (occurrence: BD)
  Receive Date: 20140527
  Receipt Date: 20140602
  Transmission Date: 20141212
  Serious: Yes (Death)
  Sender: FDA-Public Use
  Company Number: PHHY2014BD064635

PATIENT
  Age: 89 Year
  Sex: Male

DRUGS (2)
  1. EXELON [Suspect]
     Indication: DEMENTIA
     Dosage: 3 MG, DAILY
     Route: 048
     Dates: start: 201207
  2. EXELON PATCH [Suspect]
     Indication: DEMENTIA
     Dosage: UNK UKN, UNK
     Route: 062

REACTIONS (5)
  - Myocardial infarction [Fatal]
  - Chest discomfort [Fatal]
  - Restlessness [Fatal]
  - Sudden death [Fatal]
  - Rash [Fatal]
